FAERS Safety Report 8598185-9 (Version None)
Quarter: 2012Q3

REPORT INFORMATION
  Report Type: 
  Country: None (occurrence: None)
  Receive Date: 20120802
  Receipt Date: 20120724
  Transmission Date: 20120928
  Serious: Yes (Other)
  Sender: FDA-Public Use
  Company Number: US-2012-11016

PATIENT

DRUGS (1)
  1. SAMSCA [Suspect]

REACTIONS (1)
  - NEPHROGENIC DIABETES INSIPIDUS [None]
